FAERS Safety Report 7938371-1 (Version None)
Quarter: 2011Q4

REPORT INFORMATION
  Report Type: 
  Country: None (occurrence: None)
  Receive Date: 20111123
  Receipt Date: 20111114
  Transmission Date: 20120403
  Serious: Yes (Hospitalization)
  Sender: FDA-Public Use
  Company Number: US-ASTRAZENECA-2011SE69212

PATIENT
  Age: 44 Year
  Sex: Female

DRUGS (5)
  1. SYMBICORT [Suspect]
     Dosage: 1 PUFF ONCE A DAY
     Route: 055
  2. 2 TYPES OF INSULIN [Concomitant]
  3. METFORMIN [Concomitant]
  4. SYMBICORT [Suspect]
     Dosage: ONCE IN MORNING AND AGAIN IF NEEDED
     Route: 055
  5. YAZ [Suspect]
     Indication: CONTRACEPTION
     Route: 065

REACTIONS (6)
  - INAPPROPRIATE SCHEDULE OF DRUG ADMINISTRATION [None]
  - DEEP VEIN THROMBOSIS [None]
  - HYPERTENSION [None]
  - MALAISE [None]
  - BIPOLAR DISORDER [None]
  - ASTHMA [None]
